FAERS Safety Report 20818252 (Version 1)
Quarter: 2022Q2

REPORT INFORMATION
  Report Type: Spontaneous
  Country: US (occurrence: None)
  Receive Date: 20220511
  Receipt Date: 20220511
  Transmission Date: 20220721
  Serious: Yes (Life-Threatening, Disabling)
  Sender: FDA-Public Use
  Company Number: None

PATIENT
  Age: 38 Year
  Sex: Female
  Weight: 78.75 kg

DRUGS (4)
  1. BUPRENORPHINE\NALOXONE [Suspect]
     Active Substance: BUPRENORPHINE\NALOXONE
     Indication: Drug therapy
     Dosage: OTHER QUANTITY : 1 STRIP;?FREQUENCY : 3 TIMES A DAY;?
     Route: 060
     Dates: start: 20200326, end: 20220508
  2. GABAPENTIN [Concomitant]
     Active Substance: GABAPENTIN
  3. CLONIDINE [Concomitant]
     Active Substance: CLONIDINE
  4. SUBOXONE [Concomitant]
     Active Substance: BUPRENORPHINE HYDROCHLORIDE\NALOXONE HYDROCHLORIDE

REACTIONS (4)
  - Infection [None]
  - Dental caries [None]
  - Tooth fracture [None]
  - Ill-defined disorder [None]

NARRATIVE: CASE EVENT DATE: 20210720
